FAERS Safety Report 19975437 (Version 1)
Quarter: 2021Q4

REPORT INFORMATION
  Report Type: Report from Study
  Country: US (occurrence: US)
  Receive Date: 20211020
  Receipt Date: 20211020
  Transmission Date: 20220303
  Serious: Yes (Hospitalization, Other)
  Sender: FDA-Public Use
  Company Number: US-UNITED THERAPEUTICS-UNT-2021-019696

PATIENT
  Age: 41 Year
  Sex: Male
  Weight: 151.02 kg

DRUGS (3)
  1. TREPROSTINIL SODIUM [Suspect]
     Active Substance: TREPROSTINIL SODIUM
     Indication: Pulmonary arterial hypertension
     Dosage: UNK, CONTINUING
     Route: 058
     Dates: start: 20210715
  2. TREPROSTINIL SODIUM [Suspect]
     Active Substance: TREPROSTINIL SODIUM
     Dosage: 0.0308 ?G/KG, CONTINUING
     Route: 058
     Dates: start: 2021
  3. ELIQUIS [Suspect]
     Active Substance: APIXABAN
     Indication: Product used for unknown indication
     Dosage: UNK
     Route: 065

REACTIONS (14)
  - Rectal haemorrhage [Unknown]
  - Internal haemorrhage [Unknown]
  - Fluid retention [Unknown]
  - Nausea [Unknown]
  - Arthralgia [Unknown]
  - Pain in extremity [Unknown]
  - Infusion site pain [Unknown]
  - Food poisoning [Unknown]
  - Infusion site induration [Unknown]
  - Infusion site erythema [Unknown]
  - Infusion site discharge [Unknown]
  - Dyspnoea [Unknown]
  - Chest pain [Unknown]
  - Fatigue [Unknown]

NARRATIVE: CASE EVENT DATE: 20210101
